FAERS Safety Report 9371948 (Version 1)
Quarter: 2013Q2

REPORT INFORMATION
  Report Type: Report from Study
  Country: US (occurrence: US)
  Receive Date: 20130627
  Receipt Date: 20130627
  Transmission Date: 20140414
  Serious: Yes (Other)
  Sender: FDA-Public Use
  Company Number: US-MYLANLABS-2012S1010963

PATIENT
  Age: 61 Year
  Sex: Male
  Weight: 81.65 kg

DRUGS (9)
  1. CLOZAPINE TABLETS [Suspect]
     Indication: SCHIZOPHRENIA
     Dates: end: 201205
  2. CLOZAPINE TABLETS [Suspect]
     Indication: SCHIZOPHRENIA
  3. BENZOTROPINE [Concomitant]
     Route: 048
  4. EFFEXOR [Concomitant]
  5. GEODON [Concomitant]
  6. DILANTIN [Concomitant]
  7. OMEPRAZOLE [Concomitant]
  8. METFORMIN [Concomitant]
  9. LISINOPRIL [Concomitant]

REACTIONS (2)
  - Granulocytopenia [Recovered/Resolved]
  - Leukopenia [Not Recovered/Not Resolved]
